FAERS Safety Report 14024477 (Version 8)
Quarter: 2020Q3

REPORT INFORMATION
  Report Type: Report from Study
  Country: US (occurrence: US)
  Receive Date: 20170928
  Receipt Date: 20200928
  Transmission Date: 20201102
  Serious: Yes (Hospitalization, Other)
  Sender: FDA-Public Use
  Company Number: US-SA-2017SA008573

PATIENT

DRUGS (2)
  1. TERIFLUNOMIDE. [Suspect]
     Active Substance: TERIFLUNOMIDE
     Dosage: 14 MG, QD
     Route: 048
     Dates: start: 20160906
  2. TERIFLUNOMIDE. [Suspect]
     Active Substance: TERIFLUNOMIDE
     Indication: MULTIPLE SCLEROSIS
     Dosage: 14 MG, QD
     Route: 048
     Dates: start: 20160824, end: 2016

REACTIONS (20)
  - Neoplasm malignant [Unknown]
  - Limb crushing injury [Unknown]
  - Contusion [Unknown]
  - Depression [Unknown]
  - Bladder disorder [Recovering/Resolving]
  - Diarrhoea [Unknown]
  - Memory impairment [Unknown]
  - Progressive multifocal leukoencephalopathy [Unknown]
  - Vertigo [Unknown]
  - Fall [Unknown]
  - Hospitalisation [Unknown]
  - Multiple sclerosis relapse [Unknown]
  - Emotional disorder [Unknown]
  - Functional gastrointestinal disorder [Unknown]
  - Traumatic fracture [Unknown]
  - Neuropathy peripheral [Unknown]
  - Insomnia [Recovering/Resolving]
  - Toothache [Unknown]
  - Hypoaesthesia [Unknown]
  - Dental caries [Unknown]

NARRATIVE: CASE EVENT DATE: 201912
